FAERS Safety Report 6338140-2 (Version None)
Quarter: 2009Q3

REPORT INFORMATION
  Report Type: 
  Country: None (occurrence: None)
  Receive Date: 20090902
  Receipt Date: 20090819
  Transmission Date: 20100115
  Serious: Yes (Other)
  Sender: FDA-Public Use
  Company Number: US-BAYER-200925624NA

PATIENT
  Age: 66 Year
  Sex: Female

DRUGS (3)
  1. GENERIC CIPROFLOXACIN [Suspect]
     Indication: URINARY TRACT INFECTION
  2. ASPIRIN [Suspect]
     Indication: DRUG USE FOR UNKNOWN INDICATION
     Dosage: UNIT DOSE: 325 MG
     Dates: start: 20090622, end: 20090628
  3. OMEPRAZOLE [Concomitant]

REACTIONS (2)
  - GASTRITIS HAEMORRHAGIC [None]
  - TONGUE DISCOLOURATION [None]
